FAERS Safety Report 22094765 (Version 2)
Quarter: 2023Q1

REPORT INFORMATION
  Report Type: Report from Study
  Country: US (occurrence: None)
  Receive Date: 20230314
  Receipt Date: 20230317
  Transmission Date: 20230417
  Serious: Yes (Hospitalization)
  Sender: FDA-Public Use
  Company Number: 2023A056197

PATIENT

DRUGS (3)
  1. TAGRISSO [Suspect]
     Active Substance: OSIMERTINIB
     Indication: Non-small cell lung cancer metastatic
     Route: 048
     Dates: start: 20220625
  2. TAGRISSO [Suspect]
     Active Substance: OSIMERTINIB
     Indication: Non-small cell lung cancer metastatic
     Route: 048
     Dates: start: 20220103
  3. VALSARTAN [Suspect]
     Active Substance: VALSARTAN
     Dates: start: 202301

REACTIONS (10)
  - Eye disorder [Unknown]
  - Micturition disorder [Unknown]
  - Migraine [Unknown]
  - Blood pressure fluctuation [Unknown]
  - Ophthalmic migraine [Unknown]
  - Pneumonia [Unknown]
  - Drug hypersensitivity [Unknown]
  - Therapeutic response unexpected [Unknown]
  - Pruritus [Unknown]
  - Rash [Unknown]
